FAERS Safety Report 13266089 (Version 1)
Quarter: 2017Q1

REPORT INFORMATION
  Report Type: Spontaneous
  Country: FR (occurrence: FR)
  Receive Date: 20170223
  Receipt Date: 20170223
  Transmission Date: 20170428
  Serious: Yes (Hospitalization, Congenital Anomaly, Other)
  Sender: FDA-Public Use
  Company Number: FR-ABBVIE-17P-056-1885308-00

PATIENT
  Sex: Female

DRUGS (1)
  1. DEPAKINE CHRONO [Suspect]
     Active Substance: VALPROATE SODIUM
     Indication: MATERNAL EXPOSURE TIMING UNSPECIFIED
     Route: 064

REACTIONS (12)
  - Haemangioma congenital [Not Recovered/Not Resolved]
  - Skin lesion [Unknown]
  - Selective eating disorder [Unknown]
  - Shoulder dystocia [Unknown]
  - Respiratory disorder [Unknown]
  - Vertebral artery hypoplasia [Not Recovered/Not Resolved]
  - Stridor [Unknown]
  - Crying [Unknown]
  - Anomaly of external ear congenital [Unknown]
  - Foetal exposure during pregnancy [Unknown]
  - PHACES syndrome [Unknown]
  - Dyspnoea [Unknown]

NARRATIVE: CASE EVENT DATE: 20130305
